FAERS Safety Report 6234633-7 (Version None)
Quarter: 2009Q2

REPORT INFORMATION
  Report Type: 
  Country: None (occurrence: None)
  Receive Date: 20090616
  Receipt Date: 20090616
  Transmission Date: 20091009
  Serious: Yes (Hospitalization)
  Sender: FDA-Public Use
  Company Number: None

PATIENT
  Age: 56 Year
  Sex: Male
  Weight: 127.0072 kg

DRUGS (1)
  1. VYTORIN [Suspect]
     Indication: BLOOD CHOLESTEROL INCREASED
     Dosage: 10/20 1 PILL PER DAY PO
     Route: 048
     Dates: start: 20081001, end: 20090609

REACTIONS (4)
  - ABASIA [None]
  - LABORATORY TEST ABNORMAL [None]
  - MUSCLE DISORDER [None]
  - MUSCULAR WEAKNESS [None]
